FAERS Safety Report 9831467 (Version 2)
Quarter: 2014Q1

REPORT INFORMATION
  Report Type: Spontaneous
  Country: CA (occurrence: CA)
  Receive Date: 20140121
  Receipt Date: 20140224
  Transmission Date: 20141002
  Serious: Yes (Hospitalization, Other)
  Sender: FDA-Public Use
  Company Number: CA-ROCHE-1332862

PATIENT
  Age: 60 Year
  Sex: Female

DRUGS (15)
  1. HERCEPTIN [Suspect]
     Indication: BREAST CANCER
     Route: 065
     Dates: start: 20130201, end: 20131101
  2. HERCEPTIN [Suspect]
     Route: 065
     Dates: start: 20050606, end: 200609
  3. HERCEPTIN [Suspect]
     Route: 065
     Dates: start: 201203, end: 2013
  4. TRASTUZUMAB EMTANSINE [Suspect]
     Indication: BREAST CANCER
     Route: 065
     Dates: start: 20130305, end: 20131209
  5. ESCITALOPRAM [Concomitant]
     Route: 065
  6. CLONAZEPAM [Concomitant]
     Route: 065
  7. MORPHINE IR [Concomitant]
     Route: 065
  8. RANITIDINE [Concomitant]
     Route: 065
  9. DEXAMETHASONE [Concomitant]
     Route: 065
  10. STEMETIL [Concomitant]
     Route: 065
  11. ZOFRAN [Concomitant]
     Route: 065
  12. VINORELBINE [Concomitant]
     Route: 065
     Dates: start: 201203
  13. DOXORUBICIN [Concomitant]
  14. CYCLOPHOSPHAMIDE [Concomitant]
  15. TAXOL [Concomitant]

REACTIONS (2)
  - Cerebrovascular accident [Unknown]
  - Metastases to central nervous system [Recovering/Resolving]
